FAERS Safety Report 14221843 (Version 2)
Quarter: 2017Q4

REPORT INFORMATION
  Report Type: Spontaneous
  Country: US (occurrence: US)
  Receive Date: 20171123
  Receipt Date: 20171211
  Transmission Date: 20180321
  Serious: Yes (Life-Threatening, Hospitalization, Other)
  Sender: FDA-Public Use
  Company Number: US-GLENMARK PHARMACEUTICALS-2017GMK029805

PATIENT
  Age: 32 Year
  Sex: Male

DRUGS (1)
  1. LAMOTRIGINE. [Suspect]
     Active Substance: LAMOTRIGINE
     Indication: PRODUCT USED FOR UNKNOWN INDICATION
     Dosage: 9.6 G, IN TOTAL
     Route: 048

REACTIONS (9)
  - Mental disorder [Unknown]
  - Blood creatine phosphokinase increased [Unknown]
  - Toxicity to various agents [Recovering/Resolving]
  - Haemodynamic instability [Unknown]
  - Drug level increased [Recovering/Resolving]
  - Agitation [Unknown]
  - Encephalopathy [Recovered/Resolved]
  - Muscle rigidity [Recovered/Resolved]
  - Intentional overdose [Recovering/Resolving]
